FAERS Safety Report 18592186 (Version 4)
Quarter: 2021Q1

REPORT INFORMATION
  Report Type: Report from Study
  Country: None (occurrence: US)
  Receive Date: 20201209
  Receipt Date: 20210330
  Transmission Date: 20210419
  Serious: Yes (Hospitalization, Other)
  Sender: FDA-Public Use
  Company Number: US-ABBVIE-20K-163-3675740-00

PATIENT
  Sex: Female
  Weight: 106.69 kg

DRUGS (2)
  1. HUMIRA [Suspect]
     Active Substance: ADALIMUMAB
     Indication: CROHN^S DISEASE
     Dosage: CITRATE FREE
     Route: 058
     Dates: start: 2019
  2. VITAMIN B12 [Concomitant]
     Active Substance: CYANOCOBALAMIN
     Indication: VITAMIN SUPPLEMENTATION

REACTIONS (13)
  - Hip arthroplasty [Recovered/Resolved]
  - Infrequent bowel movements [Recovered/Resolved]
  - Rash vesicular [Recovered/Resolved]
  - Pain [Not Recovered/Not Resolved]
  - Bladder operation [Recovered/Resolved]
  - Procedural pain [Not Recovered/Not Resolved]
  - Wrong technique in product usage process [Unknown]
  - Headache [Recovered/Resolved]
  - Colonic abscess [Recovered/Resolved]
  - Procedural vomiting [Unknown]
  - Injection site bruising [Recovered/Resolved]
  - Malaise [Recovered/Resolved]
  - Inguinal hernia [Recovered/Resolved]

NARRATIVE: CASE EVENT DATE: 2019
